FAERS Safety Report 11789733 (Version 1)
Quarter: 2015Q4

REPORT INFORMATION
  Report Type: Spontaneous
  Country: US (occurrence: None)
  Receive Date: 20151130
  Receipt Date: 20151130
  Transmission Date: 20160305
  Serious: No
  Sender: FDA-Public Use
  Company Number: None

PATIENT
  Age: 75 Year
  Sex: Female
  Weight: 52.34 kg

DRUGS (1)
  1. BEVACIZUMAB (RHUMAB VEGF) [Suspect]
     Active Substance: BEVACIZUMAB
     Dates: end: 20151021

REACTIONS (4)
  - Loss of consciousness [None]
  - Asthenia [None]
  - Fall [None]
  - Aphasia [None]

NARRATIVE: CASE EVENT DATE: 20151117
